FAERS Safety Report 5355193-9 (Version None)
Quarter: 2007Q2

REPORT INFORMATION
  Report Type: 
  Country: None (occurrence: None)
  Receive Date: 20070611
  Receipt Date: 20070529
  Transmission Date: 20071010
  Serious: Yes (Other)
  Sender: FDA-Public Use
  Company Number: CHPA2007US06326

PATIENT
  Age: 28 Year
  Sex: Female
  Weight: 59 kg

DRUGS (1)
  1. VAGISTAT-1 [Suspect]
     Indication: VULVOVAGINAL MYCOTIC INFECTION
     Dosage: 300 MG, ONCE/SINGLE, VAGINAL
     Route: 067
     Dates: start: 20070525, end: 20070525

REACTIONS (13)
  - BLISTER [None]
  - DYSPHAGIA [None]
  - FOREIGN BODY SENSATION IN EYES [None]
  - HYPERSENSITIVITY [None]
  - HYPOAESTHESIA ORAL [None]
  - NASOPHARYNGEAL DISORDER [None]
  - OCULAR HYPERAEMIA [None]
  - ORAL MUCOSAL BLISTERING [None]
  - PYREXIA [None]
  - VAGINAL BURNING SENSATION [None]
  - VAGINAL DISCHARGE [None]
  - VAGINAL PAIN [None]
  - VAGINAL SWELLING [None]
